FAERS Safety Report 6916356-1 (Version None)
Quarter: 2010Q3

REPORT INFORMATION
  Report Type: 
  Country: None (occurrence: None)
  Receive Date: 20100810
  Receipt Date: 20100728
  Transmission Date: 20110219
  Serious: Yes (Hospitalization)
  Sender: FDA-Public Use
  Company Number: AU-CELGENEUS-008-21880-10061182

PATIENT
  Sex: Female
  Weight: 62 kg

DRUGS (7)
  1. REVLIMID [Suspect]
     Route: 048
     Dates: start: 20090416, end: 20090625
  2. VALPROATE SODIUM [Suspect]
     Indication: PRODUCT USED FOR UNKNOWN INDICATION
     Route: 065
     Dates: start: 20090414, end: 20090503
  3. DEXAMETHASONE [Concomitant]
     Route: 065
     Dates: start: 20090410, end: 20090501
  4. ZOMETA [Concomitant]
     Indication: PRODUCT USED FOR UNKNOWN INDICATION
     Route: 065
  5. NEXIUM [Concomitant]
     Indication: GASTROOESOPHAGEAL REFLUX DISEASE
     Route: 065
     Dates: end: 20090526
  6. ALLOPURINOL [Concomitant]
     Indication: TUMOUR LYSIS SYNDROME
     Route: 065
     Dates: start: 20090416, end: 20090503
  7. MAXOLON [Concomitant]
     Indication: NAUSEA
     Route: 065
     Dates: start: 20090424

REACTIONS (2)
  - DISEASE PROGRESSION [None]
  - HYPERAMMONAEMIC ENCEPHALOPATHY [None]
